FAERS Safety Report 7819678-5 (Version None)
Quarter: 2011Q4

REPORT INFORMATION
  Report Type: 
  Country: None (occurrence: None)
  Receive Date: 20111018
  Receipt Date: 20101130
  Transmission Date: 20120403
  Serious: No
  Sender: FDA-Public Use
  Company Number: US-ASTRAZENECA-2010SE56685

PATIENT
  Sex: Female

DRUGS (1)
  1. SYMBICORT [Suspect]
     Dosage: EVERY NIGHT FOR 2 WEEKS ON 2 WEEKS OFF 2 WEEKS ON
     Route: 055

REACTIONS (1)
  - AGGRESSION [None]
